FAERS Safety Report 14767940 (Version 2)
Quarter: 2018Q2

REPORT INFORMATION
  Report Type: Spontaneous
  Country: US (occurrence: US)
  Receive Date: 20180417
  Receipt Date: 20180418
  Transmission Date: 20180711
  Serious: Yes (Other)
  Sender: FDA-Public Use
  Company Number: US-TORRENT-00005929

PATIENT
  Age: 13 Year
  Sex: Male

DRUGS (7)
  1. METFORMIN [Suspect]
     Active Substance: METFORMIN HYDROCHLORIDE
     Indication: WEIGHT DECREASED
     Dosage: UNKNOWN
  2. GUANFACINE. [Concomitant]
     Active Substance: GUANFACINE
     Indication: PSYCHOMOTOR HYPERACTIVITY
     Dosage: 0.5 MG TWICE A DAY
  3. BENZTROPINE MESILATE [Concomitant]
     Active Substance: BENZTROPINE MESYLATE
     Indication: PRODUCT USED FOR UNKNOWN INDICATION
     Dosage: 0.25 MG EVERY 6 HOURS?WAS STARTED AND LATER INCREASED TO 0.5 MG
  4. SERTRALINE HCL [Concomitant]
     Active Substance: SERTRALINE HYDROCHLORIDE
     Indication: ANXIETY
     Dosage: 12.5 MG DAILY ABOUT TWO YEARS
  5. MELATONIN [Concomitant]
     Active Substance: MELATONIN
     Indication: SLEEP DISORDER
     Dosage: UNKNOWN
  6. DIPHENHYDRAMINE HYDROCHLORIDE. [Concomitant]
     Active Substance: DIPHENHYDRAMINE HYDROCHLORIDE
     Indication: PRODUCT USED FOR UNKNOWN INDICATION
     Dosage: 12.5 MG ONCE?AND ONE REPEAT DOSE OF 25 MG WAS GIVEN
  7. ARIPIPRAZOLE. [Suspect]
     Active Substance: ARIPIPRAZOLE
     Indication: IRRITABILITY
     Dosage: UNKNOWN

REACTIONS (5)
  - Off label use [Unknown]
  - Metabolic syndrome [Unknown]
  - Weight increased [Recovering/Resolving]
  - Trismus [Recovered/Resolved]
  - Drooling [Recovered/Resolved]
